FAERS Safety Report 6894148-X (Version None)
Quarter: 2010Q3

REPORT INFORMATION
  Report Type: 
  Country: None (occurrence: None)
  Receive Date: 20100802
  Receipt Date: 20100722
  Transmission Date: 20110219
  Serious: Yes (Other)
  Sender: FDA-Public Use
  Company Number: ES-JNJFOC-20100708291

PATIENT
  Age: 9 Year
  Sex: Female

DRUGS (1)
  1. DITROPAN [Suspect]
     Indication: URINARY INCONTINENCE
     Route: 048

REACTIONS (2)
  - GENERALISED ERYTHEMA [None]
  - PRURITUS [None]
